FAERS Safety Report 4662680-5 (Version None)
Quarter: 2005Q2

REPORT INFORMATION
  Report Type: 
  Country: None (occurrence: None)
  Receive Date: 20050516
  Receipt Date: 20050418
  Transmission Date: 20051028
  Serious: Yes (Disabling)
  Sender: FDA-Public Use
  Company Number: US-GLAXOSMITHKLINE-A0554507A

PATIENT
  Age: 44 Year
  Sex: Female
  Weight: 113.6 kg

DRUGS (6)
  1. BUPROPION HYDROCHLORIDE [Suspect]
     Indication: DEPRESSION
     Dosage: 150MG THREE TIMES PER DAY
     Route: 048
     Dates: start: 20050301
  2. WELLBUTRIN SR [Suspect]
     Indication: DEPRESSION
     Dosage: 150MG THREE TIMES PER DAY
     Route: 048
  3. CLONAZEPAM [Concomitant]
     Indication: PANIC ATTACK
     Route: 065
  4. NEURONTIN [Concomitant]
     Indication: BACK PAIN
     Dosage: 600MG FIVE TIMES PER DAY
     Route: 065
  5. ATENOLOL [Concomitant]
     Indication: BLOOD PRESSURE
     Route: 065
  6. TRAZODONE [Concomitant]
     Indication: INSOMNIA
     Dosage: 50MG AT NIGHT
     Route: 065

REACTIONS (11)
  - AGITATION [None]
  - ANGER [None]
  - ASTHENIA [None]
  - DEPRESSION [None]
  - DISTURBANCE IN ATTENTION [None]
  - DRUG INEFFECTIVE [None]
  - IRRITABILITY [None]
  - MOOD SWINGS [None]
  - PATHOLOGICAL GAMBLING [None]
  - SLEEP DISORDER [None]
  - SUICIDAL IDEATION [None]
